FAERS Safety Report 10064368 (Version 1)
Quarter: 2014Q2

REPORT INFORMATION
  Report Type: Spontaneous
  Country: US (occurrence: None)
  Receive Date: 20140407
  Receipt Date: 20140407
  Transmission Date: 20141212
  Serious: Yes (Hospitalization)
  Sender: FDA-Public Use
  Company Number: None

PATIENT
  Age: 85 Day
  Sex: Male

DRUGS (1)
  1. METOPROLOL [Suspect]
     Route: 048

REACTIONS (2)
  - Hypotension [None]
  - Bradycardia [None]
